FAERS Safety Report 7774066-5 (Version None)
Quarter: 2011Q3

REPORT INFORMATION
  Report Type: 
  Country: None (occurrence: None)
  Receive Date: 20110923
  Receipt Date: 20110915
  Transmission Date: 20111222
  Serious: No
  Sender: FDA-Public Use
  Company Number: US-PFIZER INC-2011219441

PATIENT
  Sex: Female

DRUGS (2)
  1. DILANTIN-125 [Suspect]
     Indication: CONVULSION
     Dosage: UNK
  2. IMPLANON [Suspect]
     Indication: CONTRACEPTION
     Dosage: 68 MG, 3-YEAR IMPLANT
     Route: 059
     Dates: start: 20090201, end: 20110630

REACTIONS (2)
  - DRUG INTERACTION [None]
  - PREGNANCY WITH IMPLANT CONTRACEPTIVE [None]
